FAERS Safety Report 5375972-1 (Version None)
Quarter: 2007Q2

REPORT INFORMATION
  Report Type: 
  Country: None (occurrence: None)
  Receive Date: 20070627
  Receipt Date: 20070627
  Transmission Date: 20071010
  Serious: Yes (Other)
  Sender: FDA-Public Use
  Company Number: None

PATIENT
  Age: 35 Year
  Sex: Male
  Weight: 122.4712 kg

DRUGS (2)
  1. ITRACONAZOLE [Suspect]
     Indication: COCCIDIOIDOMYCOSIS
     Dosage: 2 CAPSULES  2 TIMES DAILY  PO
     Route: 048
     Dates: start: 20070605, end: 20070612
  2. CELECOXIB [Concomitant]

REACTIONS (2)
  - PRURITUS [None]
  - RASH MACULO-PAPULAR [None]
